FAERS Safety Report 8958601 (Version 2)
Quarter: 2012Q4

REPORT INFORMATION
  Report Type: Spontaneous
  Country: US (occurrence: None)
  Receive Date: 20121203
  Receipt Date: 20121219
  Transmission Date: 20130627
  Serious: Yes (Death, Hospitalization)
  Sender: FDA-Public Use
  Company Number: 2012-0930

PATIENT
  Age: 67 Year
  Sex: Male

DRUGS (2)
  1. KYPROLIS [Suspect]
     Indication: MULTIPLE MYELOMA
     Route: 042
     Dates: start: 20120807
  2. ACYCLOVIR [Concomitant]

REACTIONS (6)
  - Fatigue [None]
  - Confusional state [None]
  - Escherichia infection [None]
  - Chills [None]
  - Dyspnoea [None]
  - Plasma cell myeloma [None]
